FAERS Safety Report 4768029-1 (Version None)
Quarter: 2005Q3

REPORT INFORMATION
  Report Type: 
  Country: None (occurrence: None)
  Receive Date: 20050912
  Receipt Date: 20050826
  Transmission Date: 20060218
  Serious: Yes (Hospitalization)
  Sender: FDA-Public Use
  Company Number: 2005BI004734

PATIENT
  Age: 57 Year
  Sex: Female
  Weight: 154.223 kg

DRUGS (11)
  1. AVONEX [Suspect]
     Indication: MULTIPLE SCLEROSIS
     Dosage: 30 UG;QW;IM
     Dates: start: 20000601, end: 20030901
  2. AVONEX [Suspect]
     Indication: MULTIPLE SCLEROSIS
     Dosage: 30 UG;QW;IM
     Dates: start: 20030908
  3. SEREVENT [Concomitant]
  4. TOPROL-XL [Concomitant]
  5. ASPIRIN [Concomitant]
  6. EFFEXOR XR [Concomitant]
  7. FLONASE [Concomitant]
  8. SYNTHROID [Concomitant]
  9. COUMADIN [Concomitant]
  10. PROTONIX [Concomitant]
  11. HUMIBID [Concomitant]

REACTIONS (4)
  - ASTHENIA [None]
  - HEART RATE INCREASED [None]
  - HYPOTENSION [None]
  - PNEUMONIA [None]
